FAERS Safety Report 5475719-4 (Version None)
Quarter: 2007Q4

REPORT INFORMATION
  Report Type: 
  Country: None (occurrence: None)
  Receive Date: 20071001
  Receipt Date: 20071001
  Transmission Date: 20080405
  Serious: Yes (Death)
  Sender: FDA-Public Use
  Company Number: None

PATIENT
  Age: 54 Year
  Sex: Female
  Weight: 69.8539 kg

DRUGS (1)
  1. XELODA [Suspect]
     Indication: COLON CANCER
     Dosage: 2 WEEKS ON 1 WEEK   PO
     Route: 048
     Dates: start: 20060914, end: 20061024

REACTIONS (3)
  - ABDOMINAL PAIN [None]
  - LACTIC ACIDOSIS [None]
  - MALAISE [None]
